FAERS Safety Report 7563072-1 (Version None)
Quarter: 2011Q2

REPORT INFORMATION
  Report Type: 
  Country: None (occurrence: None)
  Receive Date: 20110615
  Receipt Date: 20110601
  Transmission Date: 20111010
  Serious: Yes (Other)
  Sender: FDA-Public Use
  Company Number: 2011P1006926

PATIENT
  Age: 32 Year
  Sex: Male

DRUGS (2)
  1. FENTANYL [Suspect]
     Dosage: 1 PATCH;  1 PATCH;X1;PO
     Route: 048
     Dates: end: 20110531
  2. FENTANYL [Suspect]
     Dosage: 1 PATCH;  1 PATCH;X1;PO
     Route: 048
     Dates: start: 20110531, end: 20110531

REACTIONS (2)
  - PAIN [None]
  - INTENTIONAL DRUG MISUSE [None]
